FAERS Safety Report 8898520 (Version 2)
Quarter: 2013Q1

REPORT INFORMATION
  Report Type: Spontaneous
  Country: US (occurrence: US)
  Receive Date: 20121109
  Receipt Date: 20130121
  Transmission Date: 20140127
  Serious: No
  Sender: FDA-Public Use
  Company Number: US-009507513-1211USA000650

PATIENT
  Age: 52 Year
  Sex: Female

DRUGS (4)
  1. NASONEX [Suspect]
     Indication: NASAL CONGESTION
     Dosage: UNK, QD, SPRAY ONCE OR TWICE INTO EACH NOSTRIL DAILY
     Route: 055
     Dates: start: 20121019, end: 20121020
  2. LEVOXYL [Concomitant]
  3. HYDROCHLOROTHIAZIDE [Concomitant]
  4. SINGULAIR [Concomitant]

REACTIONS (5)
  - Nasal discomfort [Recovering/Resolving]
  - Epistaxis [Recovering/Resolving]
  - Throat irritation [Recovering/Resolving]
  - Nasal ulcer [Recovering/Resolving]
  - Headache [Recovering/Resolving]
